FAERS Safety Report 9597029 (Version 1)
Quarter: 2013Q4

REPORT INFORMATION
  Report Type: Spontaneous
  Country: US (occurrence: US)
  Receive Date: 20131004
  Receipt Date: 20131004
  Transmission Date: 20140711
  Serious: Yes (Other)
  Sender: FDA-Public Use
  Company Number: CHPA2013US015036

PATIENT
  Sex: 0

DRUGS (14)
  1. EXCEDRIN UNKNOWN [Suspect]
     Indication: HEADACHE
     Dosage: 1 DF, PRN
     Route: 048
  2. EXCEDRIN UNKNOWN [Suspect]
     Indication: NECK PAIN
  3. EXCEDRIN UNKNOWN [Suspect]
     Indication: BACK PAIN
  4. EXCEDRIN UNKNOWN [Suspect]
     Indication: DYSSTASIA
  5. EXCEDRIN UNKNOWN [Suspect]
     Indication: OFF LABEL USE
  6. EXCEDRIN TENSION HEADACHE [Suspect]
     Indication: HEADACHE
     Dosage: 1 DF, PRN
     Route: 065
  7. EXCEDRIN TENSION HEADACHE [Suspect]
     Indication: NECK PAIN
  8. EXCEDRIN TENSION HEADACHE [Suspect]
     Indication: BACK PAIN
  9. EXCEDRIN TENSION HEADACHE [Suspect]
     Indication: DYSSTASIA
  10. EXCEDRIN TENSION HEADACHE [Suspect]
     Indication: OFF LABEL USE
  11. EXCEDRIN MIGRAINE [Suspect]
     Indication: HEADACHE
     Dosage: 1 DF, PRN
     Route: 065
  12. EXCEDRIN MIGRAINE [Suspect]
     Indication: NECK PAIN
  13. EXCEDRIN MIGRAINE [Suspect]
     Indication: BACK PAIN
  14. EXCEDRIN MIGRAINE [Suspect]
     Indication: OFF LABEL USE

REACTIONS (2)
  - Cardiac disorder [Unknown]
  - Underdose [Unknown]
